FAERS Safety Report 7988252-2 (Version None)
Quarter: 2011Q4

REPORT INFORMATION
  Report Type: 
  Country: None (occurrence: None)
  Receive Date: 20111216
  Receipt Date: 20111003
  Transmission Date: 20120403
  Serious: No
  Sender: FDA-Public Use
  Company Number: US-ABBOTT-11P-163-0861441-00

PATIENT
  Sex: Female

DRUGS (2)
  1. VIGAMOX [Concomitant]
     Indication: PRODUCT USED FOR UNKNOWN INDICATION
  2. PROMETRIUM [Suspect]
     Indication: POSTMENOPAUSE
     Dates: start: 20110501

REACTIONS (1)
  - DRUG EFFECT DECREASED [None]
